FAERS Safety Report 18941353 (Version 1)
Quarter: 2021Q1

REPORT INFORMATION
  Report Type: Spontaneous
  Country: US (occurrence: US)
  Receive Date: 20210225
  Receipt Date: 20210225
  Transmission Date: 20210420
  Serious: No
  Sender: FDA-Public Use
  Company Number: US-FRESENIUS KABI-FK202101838

PATIENT
  Age: 6 Year
  Sex: Male
  Weight: 23 kg

DRUGS (1)
  1. AZITHROMYCIN FOR INJECTION [Suspect]
     Active Substance: AZITHROMYCIN ANHYDROUS
     Indication: PNEUMONIA
     Dates: start: 20210219

REACTIONS (2)
  - Intentional product use issue [Unknown]
  - Injection site pain [Recovering/Resolving]

NARRATIVE: CASE EVENT DATE: 20210219
